FAERS Safety Report 12708209 (Version 2)
Quarter: 2016Q3

REPORT INFORMATION
  Report Type: Spontaneous
  Country: PH (occurrence: PH)
  Receive Date: 20160901
  Receipt Date: 20160906
  Transmission Date: 20161109
  Serious: Yes (Death, Other)
  Sender: FDA-Public Use
  Company Number: PH-009507513-1609PHL000345

PATIENT

DRUGS (1)
  1. KEYTRUDA [Suspect]
     Active Substance: PEMBROLIZUMAB
     Indication: NEOPLASM MALIGNANT
     Dosage: 2 CYCLES, CYCLICAL

REACTIONS (1)
  - Death [Fatal]

NARRATIVE: CASE EVENT DATE: 201605
